FAERS Safety Report 5152335-5 (Version None)
Quarter: 2006Q4

REPORT INFORMATION
  Report Type: 
  Country: None (occurrence: None)
  Receive Date: 20061116
  Receipt Date: 20061109
  Transmission Date: 20070319
  Serious: Yes (Other)
  Sender: FDA-Public Use
  Company Number: 2006AP05337

PATIENT
  Age: 81 Year
  Sex: Female

DRUGS (1)
  1. SEROQUEL [Suspect]
     Indication: HALLUCINATION, VISUAL
     Route: 048

REACTIONS (5)
  - ASPIRATION [None]
  - DEMENTIA [None]
  - DIZZINESS [None]
  - DRUG HYPERSENSITIVITY [None]
  - PYREXIA [None]
